FAERS Safety Report 16464380 (Version 2)
Quarter: 2019Q2

REPORT INFORMATION
  Report Type: Spontaneous
  Country: US (occurrence: US)
  Receive Date: 20190621
  Receipt Date: 20190627
  Transmission Date: 20190711
  Serious: No
  Sender: FDA-Public Use
  Company Number: PHEH2019US025801

PATIENT
  Age: 33 Year
  Sex: Female

DRUGS (2)
  1. GILENYA [Suspect]
     Active Substance: FINGOLIMOD HYDROCHLORIDE
     Indication: HEART RATE ABNORMAL
  2. GILENYA [Suspect]
     Active Substance: FINGOLIMOD HYDROCHLORIDE
     Indication: CHEST PAIN
     Route: 065
     Dates: start: 20190610

REACTIONS (3)
  - Heart rate abnormal [Unknown]
  - Product use in unapproved indication [Unknown]
  - Chest pain [Unknown]

NARRATIVE: CASE EVENT DATE: 20190610
